FAERS Safety Report 9494411 (Version 1)
Quarter: 2013Q3

REPORT INFORMATION
  Report Type: Spontaneous
  Country: FR (occurrence: FR)
  Receive Date: 20130903
  Receipt Date: 20130903
  Transmission Date: 20140515
  Serious: Yes (Life-Threatening, Hospitalization)
  Sender: FDA-Public Use
  Company Number: FR-ELI_LILLY_AND_COMPANY-FR201308008509

PATIENT
  Age: 51 Year
  Sex: Male

DRUGS (3)
  1. ALIMTA [Suspect]
     Indication: BRONCHIAL CARCINOMA
     Dosage: 1000 MG, CYCLICAL
     Route: 042
     Dates: start: 20121128, end: 20130424
  2. AVASTIN /01555201/ [Suspect]
     Indication: BRONCHIAL CARCINOMA
     Dosage: 750 MG, CYCLICAL
     Route: 042
     Dates: start: 20121128, end: 20130425
  3. CISPLATIN [Concomitant]
     Dosage: UNK
     Route: 065

REACTIONS (4)
  - Gas gangrene [Recovered/Resolved with Sequelae]
  - Scrotal oedema [Recovered/Resolved with Sequelae]
  - Bacterial sepsis [Recovered/Resolved with Sequelae]
  - Off label use [Unknown]
